FAERS Safety Report 6929896-6 (Version None)
Quarter: 2010Q3

REPORT INFORMATION
  Report Type: 
  Country: None (occurrence: None)
  Receive Date: 20100817
  Receipt Date: 20100817
  Transmission Date: 20110219
  Serious: Yes (Disabling)
  Sender: FDA-Public Use
  Company Number: None

PATIENT
  Age: 61 Year
  Sex: Female
  Weight: 103.4201 kg

DRUGS (1)
  1. LOVASTATIN [Suspect]
     Indication: BLOOD CHOLESTEROL
     Dosage: 1 A DAY
     Dates: start: 20100708, end: 20100728

REACTIONS (3)
  - ABASIA [None]
  - MUSCLE DISORDER [None]
  - MUSCULOSKELETAL PAIN [None]
